FAERS Safety Report 12225789 (Version 1)
Quarter: 2016Q1

REPORT INFORMATION
  Report Type: Spontaneous
  Country: US (occurrence: None)
  Receive Date: 20160330
  Receipt Date: 20160330
  Transmission Date: 20160526
  Serious: No
  Sender: FDA-Public Use
  Company Number: None

PATIENT
  Age: 61 Year
  Sex: Male

DRUGS (1)
  1. TASIGNA [Suspect]
     Active Substance: NILOTINIB
     Indication: PRODUCT USED FOR UNKNOWN INDICATION
     Dosage: 2 CAPSULES DAILY ORAL
     Route: 048

REACTIONS (3)
  - Influenza like illness [None]
  - Decreased interest [None]
  - Dry skin [None]

NARRATIVE: CASE EVENT DATE: 20160325
